FAERS Safety Report 13475883 (Version 11)
Quarter: 2020Q2

REPORT INFORMATION
  Report Type: Report from Study
  Country: DE (occurrence: DE)
  Receive Date: 20170425
  Receipt Date: 20200409
  Transmission Date: 20200713
  Serious: Yes (Other)
  Sender: FDA-Public Use
  Company Number: PHHY2017DE059935

PATIENT
  Sex: Female
  Weight: 52 kg

DRUGS (33)
  1. COSENTYX [Suspect]
     Active Substance: SECUKINUMAB
     Dosage: 300 MG, (PER APPLICATION)
     Route: 065
     Dates: start: 20160525
  2. COSENTYX [Suspect]
     Active Substance: SECUKINUMAB
     Dosage: 300 MG, (PER APPLICATION)
     Route: 065
     Dates: start: 20160831
  3. COSENTYX [Suspect]
     Active Substance: SECUKINUMAB
     Dosage: 300 MG, (PER APPLICATION)
     Route: 065
     Dates: start: 20170321
  4. NASONEX [Concomitant]
     Active Substance: MOMETASONE FUROATE
     Indication: NASAL DRYNESS
     Dosage: UNK UNK, PRN
     Route: 006
  5. METAMIZOLE [Concomitant]
     Active Substance: METAMIZOLE
     Indication: PAIN
     Dosage: 4 DF, PRN (4UG/LITRE)
     Route: 048
  6. COSENTYX [Suspect]
     Active Substance: SECUKINUMAB
     Dosage: 300 MG, (PER APPLICATION)
     Route: 065
     Dates: start: 20160518
  7. LODOTRA [Concomitant]
     Active Substance: PREDNISONE
     Indication: RHEUMATOID ARTHRITIS
     Dosage: 5 MG, QD
     Route: 048
     Dates: start: 20151214
  8. SIMPONI [Concomitant]
     Active Substance: GOLIMUMAB
     Dosage: 100 MG, QMO
     Route: 058
     Dates: start: 20161031
  9. BARICITINIB [Concomitant]
     Active Substance: BARICITINIB
     Indication: PSORIATIC ARTHROPATHY
     Dosage: 4 MG, QD
     Route: 048
     Dates: start: 20170410
  10. COSENTYX [Suspect]
     Active Substance: SECUKINUMAB
     Dosage: 300 MG, (PER APPLICATION)
     Route: 065
     Dates: start: 20160707
  11. COSENTYX [Suspect]
     Active Substance: SECUKINUMAB
     Dosage: 300 MG, (PER APPLICATION)
     Route: 065
     Dates: start: 20160720
  12. METAMIZOLE [Concomitant]
     Active Substance: METAMIZOLE
     Indication: PAIN
  13. APREMILAST [Concomitant]
     Active Substance: APREMILAST
     Indication: PSORIATIC ARTHROPATHY
     Dosage: UNK
     Route: 048
     Dates: start: 20160627, end: 20160920
  14. SIMPONI [Concomitant]
     Active Substance: GOLIMUMAB
     Indication: PSORIATIC ARTHROPATHY
     Dosage: 50 MG, QMO
     Route: 058
     Dates: start: 20160928, end: 20161031
  15. COSENTYX [Suspect]
     Active Substance: SECUKINUMAB
     Dosage: 300 MG, (PER APPLICATION)
     Route: 065
     Dates: start: 20160817
  16. COSENTYX [Suspect]
     Active Substance: SECUKINUMAB
     Dosage: 300 MG, (PER APPLICATION)
     Route: 065
     Dates: start: 20170124
  17. COSENTYX [Suspect]
     Active Substance: SECUKINUMAB
     Dosage: 300 MG, (PER APPLICATION)
     Route: 065
     Dates: start: 20170221
  18. RISEDRONATE [Concomitant]
     Active Substance: RISEDRONATE SODIUM
     Indication: OSTEOPOROSIS PROPHYLAXIS
     Dosage: 35 MG, QW
     Route: 048
  19. COSENTYX [Suspect]
     Active Substance: SECUKINUMAB
     Dosage: 300 MG, (PER APPLICATION)
     Route: 065
     Dates: start: 20160622
  20. METAMIZOLE [Concomitant]
     Active Substance: METAMIZOLE
     Indication: PAIN
  21. COSENTYX [Suspect]
     Active Substance: SECUKINUMAB
     Indication: PSORIATIC ARTHROPATHY
     Dosage: 300 MG, (PER APPLICATION)
     Route: 065
     Dates: start: 20160427
  22. COSENTYX [Suspect]
     Active Substance: SECUKINUMAB
     Dosage: 300 MG, (PER APPLICATION)
     Route: 065
     Dates: start: 20161004
  23. COSENTYX [Suspect]
     Active Substance: SECUKINUMAB
     Dosage: 300 MG, (PER APPLICATION)
     Route: 065
     Dates: start: 20161101
  24. COSENTYX [Suspect]
     Active Substance: SECUKINUMAB
     Dosage: 300 MG, (PER APPLICATION)
     Route: 065
     Dates: start: 20161129
  25. COSENTYX [Suspect]
     Active Substance: SECUKINUMAB
     Dosage: 300 MG, (PER APPLICATION)
     Route: 065
     Dates: start: 20161227
  26. L-THYROXIN [Concomitant]
     Active Substance: LEVOTHYROXINE SODIUM
     Indication: AUTOIMMUNE THYROIDITIS
     Dosage: 100 UG, QD
     Route: 048
  27. COSENTYX [Suspect]
     Active Substance: SECUKINUMAB
     Dosage: 300 MG, (PER APPLICATION)
     Route: 065
     Dates: start: 20160803
  28. COSENTYX [Suspect]
     Active Substance: SECUKINUMAB
     Dosage: 300 MG, (PER APPLICATION)
     Route: 065
     Dates: start: 20160914
  29. FOLIC ACID. [Concomitant]
     Active Substance: FOLIC ACID
     Indication: RHEUMATOID ARTHRITIS
     Dosage: 5 MG, UNK/EVERY FIFTH DAY
     Route: 048
     Dates: start: 20150527
  30. COSENTYX [Suspect]
     Active Substance: SECUKINUMAB
     Dosage: 300 MG, (PER APPLICATION)
     Route: 065
     Dates: start: 20160504
  31. COSENTYX [Suspect]
     Active Substance: SECUKINUMAB
     Dosage: 300 MG, (PER APPLICATION)
     Route: 065
     Dates: start: 20160511
  32. METHOTREXATE. [Concomitant]
     Active Substance: METHOTREXATE
     Indication: RHEUMATOID ARTHRITIS
     Dosage: 10 MG, UNK/EVERY FIFTH DAY
     Route: 048
     Dates: start: 20160310
  33. VIGANTOLETTEN [Concomitant]
     Active Substance: CHOLECALCIFEROL
     Indication: OSTEOPOROSIS PROPHYLAXIS
     Dosage: 1000 IU, QD
     Route: 048

REACTIONS (2)
  - Macular oedema [Recovered/Resolved with Sequelae]
  - Iridocyclitis [Recovered/Resolved with Sequelae]

NARRATIVE: CASE EVENT DATE: 20170120
